FAERS Safety Report 5924778-0 (Version None)
Quarter: 2008Q4

REPORT INFORMATION
  Report Type: 
  Country: None (occurrence: None)
  Receive Date: 20081017
  Receipt Date: 20081001
  Transmission Date: 20090506
  Serious: Yes (Other)
  Sender: FDA-Public Use
  Company Number: 2008US002664

PATIENT
  Age: 80 Year
  Sex: Female
  Weight: 73 kg

DRUGS (12)
  1. VESICARE [Suspect]
     Indication: BLADDER DISORDER
     Dates: start: 20080101
  2. CELEBREX [Suspect]
     Indication: ARTHRITIS
     Dosage: 200 MG, UID/QD,
     Dates: start: 20080101, end: 20080801
  3. XALATAN [Suspect]
     Indication: GLAUCOMA
     Dosage: 1 DROPS, UID/QD,
  4. ZYRTEC [Concomitant]
  5. MELOXICAM [Concomitant]
  6. SENOKOT S (SENNOSIDE A+B, DOCUSATE SODIUM) [Concomitant]
  7. BEXTRA (PARECOXIB SODIUM) [Concomitant]
  8. LISINOPRIL (LISINOPRIL DIHYDRATE) [Concomitant]
  9. THYROID TAB [Concomitant]
  10. TRAMADOL HCL [Concomitant]
  11. PHILLIPS LAXCAPS (PHENOLPHTHALEIN, DOCUSATE SODIUM) [Concomitant]
  12. TROSPIUM (TROSPIUM) [Concomitant]

REACTIONS (4)
  - DRY MOUTH [None]
  - EYE IRRITATION [None]
  - OEDEMA PERIPHERAL [None]
  - PAIN IN EXTREMITY [None]
